FAERS Safety Report 6555569-8 (Version None)
Quarter: 2010Q1

REPORT INFORMATION
  Report Type: 
  Country: None (occurrence: None)
  Receive Date: 20100128
  Receipt Date: 20100119
  Transmission Date: 20100710
  Serious: Yes (Other)
  Sender: FDA-Public Use
  Company Number: US-JNJCH-2010002357

PATIENT
  Age: 62 Year
  Sex: Female
  Weight: 72.1 kg

DRUGS (2)
  1. ROLAIDS EXTRA STRENGTH FRESHMINT [Suspect]
     Indication: GASTROOESOPHAGEAL REFLUX DISEASE
     Dosage: TEXT:2-3 TABLETS AS NEEDED
     Route: 048
  2. ADVAIR HFA [Concomitant]
     Indication: ASTHMA
     Dosage: TEXT:LOW DOSE 2X PER DAY
     Route: 065

REACTIONS (7)
  - DIARRHOEA [None]
  - GASTROOESOPHAGEAL REFLUX DISEASE [None]
  - HAEMORRHAGE [None]
  - NAUSEA [None]
  - OFF LABEL USE [None]
  - VOMITING [None]
  - WEIGHT DECREASED [None]
